FAERS Safety Report 16720771 (Version 2)
Quarter: 2019Q3

REPORT INFORMATION
  Report Type: Spontaneous
  Country: GB (occurrence: GB)
  Receive Date: 20190820
  Receipt Date: 20190827
  Transmission Date: 20191005
  Serious: Yes (Hospitalization)
  Sender: FDA-Public Use
  Company Number: GB-PFIZER INC-2019351786

PATIENT
  Age: 13 Year
  Sex: Female
  Weight: 46 kg

DRUGS (10)
  1. PARACETAMOL [Concomitant]
     Active Substance: ACETAMINOPHEN
     Dosage: UNK (AT APPROPRIATE DOSES POSTOPERATIVELY)
  2. PROPOFOL. [Suspect]
     Active Substance: PROPOFOL
     Indication: GENERAL ANAESTHESIA
     Dosage: 200 MG, SINGLE, BOLUS
     Route: 040
  3. ADRENALINE [EPINEPHRINE] [Concomitant]
     Active Substance: EPINEPHRINE
     Dosage: UNK (LOCAL INFILTRATION OF 0.25% BUPIVACAINE WITH ADRENALINE)UNK
  4. ONDANSETRON [Concomitant]
     Active Substance: ONDANSETRON
     Dosage: UNK (AT APPROPRIATE DOSES POSTOPERATIVELY)
  5. BUPIVACAINE. [Concomitant]
     Active Substance: BUPIVACAINE
     Dosage: UNK (LOCAL INFILTRATION OF 0.25% BUPIVACAINE WITH ADRENALINE)
  6. IBUPROFEN. [Concomitant]
     Active Substance: IBUPROFEN
     Dosage: UNK (AT APPROPRIATE DOSES POSTOPERATIVELY)
  7. SEVOFLURANE. [Concomitant]
     Active Substance: SEVOFLURANE
     Indication: RESPIRATORY THERAPY
     Dosage: UNK
  8. OXYGEN. [Concomitant]
     Active Substance: OXYGEN
     Indication: RESPIRATORY THERAPY
     Dosage: UNK
  9. DEXAMETHASONE. [Concomitant]
     Active Substance: DEXAMETHASONE
     Dosage: 4 MG, UNK
  10. FENTANYL. [Concomitant]
     Active Substance: FENTANYL
     Indication: GENERAL ANAESTHESIA
     Dosage: 25 UG, UNK

REACTIONS (2)
  - Muscular weakness [Recovered/Resolved]
  - Myoclonus [Recovered/Resolved]
